FAERS Safety Report 13281525 (Version 4)
Quarter: 2017Q2

REPORT INFORMATION
  Report Type: Spontaneous
  Country: MY (occurrence: MY)
  Receive Date: 20170301
  Receipt Date: 20170505
  Transmission Date: 20170830
  Serious: Yes (Other)
  Sender: FDA-Public Use
  Company Number: MY-AUROBINDO-AUR-APL-2017-30222

PATIENT
  Age: 15 Year
  Sex: Female

DRUGS (1)
  1. RISPERIDONE 1MG/ML [Suspect]
     Active Substance: RISPERIDONE
     Indication: PRODUCT USED FOR UNKNOWN INDICATION
     Route: 065

REACTIONS (9)
  - Seizure [Unknown]
  - Condition aggravated [Unknown]
  - Insomnia [Unknown]
  - Product substitution issue [Unknown]
  - Abnormal behaviour [Unknown]
  - Intentional self-injury [Unknown]
  - Dystonia [Unknown]
  - Drug ineffective [Unknown]
  - Agitation [Unknown]
